FAERS Safety Report 19691089 (Version 1)
Quarter: 2021Q3

REPORT INFORMATION
  Report Type: Spontaneous
  Country: US (occurrence: US)
  Receive Date: 20210812
  Receipt Date: 20210812
  Transmission Date: 20211014
  Serious: No
  Sender: FDA-Public Use
  Company Number: None

PATIENT
  Age: 21 Year
  Sex: Female
  Weight: 62.4 kg

DRUGS (4)
  1. ALBUTEROL. [Concomitant]
     Active Substance: ALBUTEROL
  2. JUNEL FE 1/20 [Suspect]
     Active Substance: ETHINYL ESTRADIOL\NORETHINDRONE ACETATE
     Indication: CONTRACEPTION
     Route: 048
     Dates: start: 20210720
  3. GENERIC NUVARING [Suspect]
     Active Substance: ETHINYL ESTRADIOL\ETONOGESTREL
  4. FLOVENT DISKUS [Concomitant]
     Active Substance: FLUTICASONE PROPIONATE

REACTIONS (4)
  - Nausea [None]
  - Weight increased [None]
  - Malaise [None]
  - Product substitution issue [None]
